FAERS Safety Report 24254578 (Version 2)
Quarter: 2024Q3

REPORT INFORMATION
  Report Type: Spontaneous
  Country: IT (occurrence: IT)
  Receive Date: 20240827
  Receipt Date: 20240830
  Transmission Date: 20241016
  Serious: Yes (Other)
  Sender: MYLAN
  Company Number: IT-ViiV Healthcare Limited-IT2024GSK099062

PATIENT
  Age: 60 Year
  Sex: Female

DRUGS (18)
  1. LAMIVUDINE [Suspect]
     Active Substance: LAMIVUDINE
     Indication: HIV infection
     Dosage: UNK
     Route: 048
     Dates: start: 201805, end: 201909
  2. LAMIVUDINE [Suspect]
     Active Substance: LAMIVUDINE
     Dosage: UNK
     Route: 048
     Dates: start: 202007, end: 202204
  3. LOPINAVIR\RITONAVIR [Suspect]
     Active Substance: LOPINAVIR\RITONAVIR
     Indication: HIV infection
     Dosage: UNK
     Route: 048
     Dates: start: 201203, end: 202007
  4. MARAVIROC [Suspect]
     Active Substance: MARAVIROC
     Indication: HIV infection
     Dosage: UNK
     Route: 048
     Dates: start: 200910, end: 201310
  5. MARAVIROC [Suspect]
     Active Substance: MARAVIROC
     Dosage: UNK
     Route: 048
     Dates: start: 202007, end: 202204
  6. EFAVIRENZ [Suspect]
     Active Substance: EFAVIRENZ
     Indication: HIV infection
     Dosage: UNK
     Route: 048
     Dates: start: 200901, end: 200910
  7. NELFINAVIR [Suspect]
     Active Substance: NELFINAVIR
     Indication: HIV infection
     Dosage: UNK
     Route: 048
  8. ENFUVIRTIDE [Suspect]
     Active Substance: ENFUVIRTIDE
     Indication: HIV infection
     Dosage: UNK
     Route: 058
  9. ETRAVIRINE [Suspect]
     Active Substance: ETRAVIRINE
     Indication: HIV infection
     Dosage: UNK
     Route: 048
     Dates: start: 200910, end: 202007
  10. RALTEGRAVIR [Suspect]
     Active Substance: RALTEGRAVIR
     Indication: HIV infection
     Dosage: UNK
     Route: 048
     Dates: start: 200910, end: 201111
  11. DARUNAVIR\RITONAVIR [Suspect]
     Active Substance: DARUNAVIR\RITONAVIR
     Indication: HIV infection
     Dosage: UNK
     Route: 048
     Dates: start: 201202, end: 201203
  12. DARUNAVIR\RITONAVIR [Suspect]
     Active Substance: DARUNAVIR\RITONAVIR
     Dosage: UNK
     Route: 048
     Dates: start: 202007, end: 202204
  13. EMTRICITABINE\TENOFOVIR DISOPROXIL FUMARATE [Suspect]
     Active Substance: EMTRICITABINE\TENOFOVIR DISOPROXIL FUMARATE
     Indication: HIV infection
     Dosage: UNK
     Route: 048
     Dates: start: 200901, end: 202007
  14. FOSTEMSAVIR [Suspect]
     Active Substance: FOSTEMSAVIR
     Indication: HIV infection
     Dosage: UNK
     Route: 048
     Dates: start: 201601, end: 201805
  15. STAVUDINE [Suspect]
     Active Substance: STAVUDINE
     Indication: HIV infection
     Dosage: UNK
     Route: 048
  16. IBALIZUMAB [Suspect]
     Active Substance: IBALIZUMAB
     Indication: HIV infection
     Dosage: UNK
     Route: 048
     Dates: start: 202007, end: 202204
  17. DOLUTEGRAVIR [Suspect]
     Active Substance: DOLUTEGRAVIR
     Indication: HIV infection
     Dosage: UNK
     Route: 048
     Dates: start: 201402, end: 201506
  18. DOLUTEGRAVIR [Suspect]
     Active Substance: DOLUTEGRAVIR
     Dosage: UNK
     Route: 048
     Dates: start: 201601, end: 201805

REACTIONS (6)
  - Weight increased [Recovered/Resolved]
  - Pathogen resistance [Unknown]
  - Hypertension [Unknown]
  - Viral mutation identified [Unknown]
  - Treatment noncompliance [Unknown]
  - Virologic failure [Recovered/Resolved]
